FAERS Safety Report 17382163 (Version 1)
Quarter: 2020Q1

REPORT INFORMATION
  Report Type: Spontaneous
  Country: US (occurrence: US)
  Receive Date: 20200206
  Receipt Date: 20200206
  Transmission Date: 20200409
  Serious: No
  Sender: FDA-Public Use
  Company Number: US-SA-2020SA031559

PATIENT
  Sex: Male

DRUGS (7)
  1. XOLAIR [Concomitant]
     Active Substance: OMALIZUMAB
  2. ASPIR 81 [Concomitant]
     Active Substance: ASPIRIN
  3. SYNTHROID [Concomitant]
     Active Substance: LEVOTHYROXINE SODIUM
  4. PLAVIX [Suspect]
     Active Substance: CLOPIDOGREL BISULFATE
     Indication: PRODUCT USED FOR UNKNOWN INDICATION
     Route: 065
  5. NIACIN. [Concomitant]
     Active Substance: NIACIN
  6. COREG [Concomitant]
     Active Substance: CARVEDILOL
  7. VALSARTAN. [Concomitant]
     Active Substance: VALSARTAN

REACTIONS (5)
  - Lip swelling [Unknown]
  - Urticaria [Unknown]
  - Contusion [Unknown]
  - Haematoma [Unknown]
  - Eye swelling [Unknown]
